FAERS Safety Report 5901846-0 (Version None)
Quarter: 2008Q3

REPORT INFORMATION
  Report Type: 
  Country: None (occurrence: None)
  Receive Date: 20080929
  Receipt Date: 20080923
  Transmission Date: 20090109
  Serious: Yes (Death)
  Sender: FDA-Public Use
  Company Number: US-CELGENEUS-163-21880-08091445

PATIENT
  Sex: Male

DRUGS (1)
  1. REVLIMID [Suspect]
     Indication: MULTIPLE MYELOMA
     Route: 048
     Dates: start: 20080301, end: 20080601

REACTIONS (5)
  - CLOSTRIDIAL INFECTION [None]
  - DEATH [None]
  - GAIT DISTURBANCE [None]
  - GRAFT VERSUS HOST DISEASE [None]
  - PYREXIA [None]
